FAERS Safety Report 5712818 (Version 3)
Quarter: 2016Q1

REPORT INFORMATION
  Report Type: Spontaneous
  Country: DE (occurrence: DE)
  Receive Date: 20050112
  Receipt Date: 20160211
  Transmission Date: 20160526
  Serious: Yes (Other)
  Sender: FDA-Public Use
  Company Number: DE-BRISTOL-MYERS SQUIBB COMPANY-12816815

PATIENT
  Age: 16 Year
  Sex: Female
  Weight: 50 kg

DRUGS (6)
  1. METHOTREXATE [Suspect]
     Active Substance: METHOTREXATE
     Indication: OSTEOSARCOMA
     Dosage: 146.6 G, TOTAL
     Route: 042
     Dates: start: 20010807, end: 20020721
  2. DOXORUBICIN HCL LIPOSOME [Suspect]
     Active Substance: DOXORUBICIN HYDROCHLORIDE
     Indication: OSTEOSARCOMA
     Dosage: 508 MG, TOTAL
     Route: 042
     Dates: start: 20010807, end: 20020721
  3. HEPARIN [Concomitant]
     Active Substance: HEPARIN SODIUM
     Indication: PRODUCT USED FOR UNKNOWN INDICATION
     Dosage: UNK
     Route: 065
     Dates: start: 200405
  4. CISPLATIN. [Suspect]
     Active Substance: CISPLATIN
     Indication: OSTEOSARCOMA
     Dosage: 508 MG, TOTAL
     Route: 042
     Dates: start: 20010807, end: 20020721
  5. IFOSFAMIDE. [Suspect]
     Active Substance: IFOSFAMIDE
     Indication: OSTEOSARCOMA
     Dosage: 24.8 G, TOTAL
     Route: 042
     Dates: start: 20010807, end: 20020721
  6. MARCUMAR [Concomitant]
     Active Substance: PHENPROCOUMON
     Indication: PRODUCT USED FOR UNKNOWN INDICATION
     Dosage: UNK
     Route: 065
     Dates: end: 200405

REACTIONS (6)
  - Thrombosis [Recovered/Resolved]
  - Caesarean section [Unknown]
  - Cerebrovascular accident [Recovered/Resolved]
  - Deafness transitory [Recovered/Resolved]
  - Pregnancy [Recovered/Resolved]
  - Beta 2 microglobulin increased [Recovered/Resolved]

NARRATIVE: CASE EVENT DATE: 200202
